FAERS Safety Report 5836626-8 (Version None)
Quarter: 2008Q3

REPORT INFORMATION
  Report Type: 
  Country: None (occurrence: None)
  Receive Date: 20080807
  Receipt Date: 20080728
  Transmission Date: 20090109
  Serious: Yes (Hospitalization)
  Sender: FDA-Public Use
  Company Number: FR-ELI_LILLY_AND_COMPANY-FR200807005471

PATIENT
  Sex: Male

DRUGS (23)
  1. GEMZAR [Suspect]
     Indication: LUNG ADENOCARCINOMA
     Dosage: 2360 UNK, UNK
     Route: 042
     Dates: start: 20080623
  2. CISPLATIN [Concomitant]
     Indication: LUNG ADENOCARCINOMA
     Dosage: 151 MG, UNK
     Route: 042
     Dates: start: 20080602
  3. CISPLATIN [Concomitant]
     Dosage: 142 MG, UNK
     Route: 042
     Dates: start: 20080623, end: 20080623
  4. CEFTAZIDIME [Concomitant]
  5. SIBELIUM [Concomitant]
     Route: 048
  6. PLAVIX [Concomitant]
     Route: 048
  7. ATENOLOL [Concomitant]
     Route: 048
  8. EQUANIL [Concomitant]
     Route: 048
  9. HAVLANE [Concomitant]
     Route: 048
  10. PARIET [Concomitant]
     Route: 048
  11. ALPRAZOLAM [Concomitant]
     Route: 048
  12. ACETAMINOPHEN [Concomitant]
     Route: 048
  13. JOSIR [Concomitant]
     Route: 048
  14. CEBUTID [Concomitant]
     Route: 048
  15. DEROXAT [Concomitant]
     Route: 048
  16. SERTRALINE [Concomitant]
     Dates: start: 20080630
  17. NOZINAN [Concomitant]
  18. ZOLOFT [Concomitant]
     Dosage: 300 MG, DAILY (1/D)
  19. ZOCOR [Concomitant]
     Dosage: 100 MG, DAILY (1/D)
  20. ASPEGIC 325 [Concomitant]
     Dosage: 75 MG, DAILY (1/D)
  21. NEXIUM [Concomitant]
     Dosage: 20 MG, UNK
  22. XANAX [Concomitant]
     Dosage: 0.5 - 1 MG DAILY
  23. PERINDOPRIL ERBUMINE [Concomitant]
     Dosage: 2 MG (10 MG)

REACTIONS (1)
  - ACUTE CORONARY SYNDROME [None]
